FAERS Safety Report 20710144 (Version 3)
Quarter: 2022Q2

REPORT INFORMATION
  Report Type: Spontaneous
  Country: IT (occurrence: IT)
  Receive Date: 20220414
  Receipt Date: 20220524
  Transmission Date: 20220720
  Serious: Yes (Hospitalization)
  Sender: FDA-Public Use
  Company Number: None

PATIENT
  Age: 35 Year
  Sex: Female

DRUGS (6)
  1. IBUPROFEN [Suspect]
     Active Substance: IBUPROFEN
     Indication: Product used for unknown indication
     Dosage: 18000 MG
     Route: 048
     Dates: start: 20220228, end: 20220228
  2. DIAZEPAM [Suspect]
     Active Substance: DIAZEPAM
     Indication: Affective disorder
     Dosage: 40 ML
     Route: 048
     Dates: start: 20220228, end: 20220228
  3. MIRTAZAPINE [Suspect]
     Active Substance: MIRTAZAPINE
     Indication: Affective disorder
     Dosage: 420 MG
     Route: 048
     Dates: start: 20220228, end: 20220228
  4. QUETIAPINE FUMARATE [Suspect]
     Active Substance: QUETIAPINE FUMARATE
     Indication: Personality disorder
     Dosage: 500 MG
     Route: 048
     Dates: start: 20220228, end: 20220228
  5. PROMAZINE HYDROCHLORIDE [Suspect]
     Active Substance: PROMAZINE HYDROCHLORIDE
     Indication: Affective disorder
     Dosage: 30 ML
     Route: 048
     Dates: start: 20220228, end: 20220228
  6. BRINTELLIX [Suspect]
     Active Substance: VORTIOXETINE HYDROBROMIDE
     Indication: Affective disorder
     Dosage: 20 DOSAGE FORM
     Route: 048
     Dates: start: 20220228, end: 20220228

REACTIONS (5)
  - Sopor [Recovered/Resolved]
  - Bradyphrenia [Recovered/Resolved]
  - Bradykinesia [Recovered/Resolved]
  - Intentional self-injury [Recovered/Resolved]
  - Drug abuse [Recovered/Resolved]

NARRATIVE: CASE EVENT DATE: 20220228
